FAERS Safety Report 7618949-5 (Version None)
Quarter: 2011Q3

REPORT INFORMATION
  Report Type: 
  Country: None (occurrence: None)
  Receive Date: 20110718
  Receipt Date: 20110707
  Transmission Date: 20111222
  Serious: Yes (Hospitalization, Other)
  Sender: FDA-Public Use
  Company Number: BR-SANOFI-AVENTIS-2011SA043479

PATIENT
  Age: 68 Year
  Sex: Female
  Weight: 83 kg

DRUGS (5)
  1. SOLOSTAR [Suspect]
     Indication: TYPE 2 DIABETES MELLITUS
     Dates: start: 20070101, end: 20070101
  2. GALVUS MET [Concomitant]
     Indication: TYPE 2 DIABETES MELLITUS
     Route: 048
     Dates: start: 20070101
  3. BETAHISTINE HYDROCHLORIDE [Concomitant]
     Indication: LABYRINTHITIS
     Route: 048
     Dates: start: 20100101
  4. LANTUS [Suspect]
     Indication: TYPE 2 DIABETES MELLITUS
     Dosage: AFTER DINNER
     Route: 058
     Dates: start: 20070101
  5. NEURONTIN [Concomitant]
     Indication: DIABETIC NEUROPATHY
     Route: 048
     Dates: start: 20070101

REACTIONS (12)
  - ADVERSE REACTION [None]
  - INCOHERENT [None]
  - HYPOGLYCAEMIA [None]
  - OSTEOPOROSIS [None]
  - DIZZINESS [None]
  - HIP FRACTURE [None]
  - LABYRINTHITIS [None]
  - FALL [None]
  - HYPERGLYCAEMIA [None]
  - SPINAL FRACTURE [None]
  - HYPERHIDROSIS [None]
  - DIABETIC NEUROPATHY [None]
